FAERS Safety Report 17262518 (Version 5)
Quarter: 2022Q4

REPORT INFORMATION
  Report Type: Report from Study
  Country: US (occurrence: US)
  Receive Date: 20200113
  Receipt Date: 20221219
  Transmission Date: 20230112
  Serious: Yes (Other)
  Sender: FDA-Public Use
  Company Number: None

PATIENT
  Sex: Female

DRUGS (2)
  1. COSENTYX [Suspect]
     Active Substance: SECUKINUMAB
     Indication: Product used for unknown indication
     Dosage: UNK
     Route: 065
  2. COSENTYX [Suspect]
     Active Substance: SECUKINUMAB
     Dosage: UNK
     Route: 065

REACTIONS (7)
  - Haemorrhage [Unknown]
  - Pain in extremity [Unknown]
  - Burning sensation [Unknown]
  - Scab [Not Recovered/Not Resolved]
  - Headache [Unknown]
  - Pruritus [Unknown]
  - Product temperature excursion issue [Unknown]
